FAERS Safety Report 25598841 (Version 2)
Quarter: 2025Q3

REPORT INFORMATION
  Report Type: Spontaneous
  Country: US (occurrence: US)
  Receive Date: 20250724
  Receipt Date: 20250801
  Transmission Date: 20251020
  Serious: No
  Sender: ROCHE
  Company Number: US-ROCHE-10000341270

PATIENT
  Sex: Female

DRUGS (3)
  1. XOLAIR [Suspect]
     Active Substance: OMALIZUMAB
     Indication: Urticaria
     Dosage: STRENGTH: 300MG/2ML
     Route: 058
     Dates: start: 202412
  2. XOLAIR [Suspect]
     Active Substance: OMALIZUMAB
     Indication: Idiopathic urticaria
  3. TAKHZYRO [Concomitant]
     Active Substance: LANADELUMAB-FLYO
     Route: 050

REACTIONS (3)
  - Off label use [Unknown]
  - Pharyngeal swelling [Recovering/Resolving]
  - Abdominal distension [Recovering/Resolving]
